FAERS Safety Report 6201882-3 (Version None)
Quarter: 2009Q2

REPORT INFORMATION
  Report Type: 
  Country: None (occurrence: None)
  Receive Date: 20090526
  Receipt Date: 20090513
  Transmission Date: 20091009
  Serious: Yes (Hospitalization)
  Sender: FDA-Public Use
  Company Number: PHHO2009GB06151

PATIENT
  Sex: Male

DRUGS (4)
  1. VALSARTAN [Suspect]
     Dosage: 60 MG OD
  2. BLINDED NO TREATMENT RECEIVED NOMED [Suspect]
     Dosage: 160 MG, UNK
     Route: 048
  3. BLINDED PLACEBO PLACEBO [Suspect]
     Dosage: 160 MG, UNK
     Route: 048
  4. STARLIX [Suspect]
     Dosage: 160 MG, UNK
     Route: 048

REACTIONS (3)
  - ASTHENIA [None]
  - CONFUSIONAL STATE [None]
  - FALL [None]
